FAERS Safety Report 9769778 (Version 1)
Quarter: 2013Q4

REPORT INFORMATION
  Report Type: Spontaneous
  Country: US (occurrence: US)
  Receive Date: 20131218
  Receipt Date: 20131218
  Transmission Date: 20140711
  Serious: No
  Sender: FDA-Public Use
  Company Number: US-VERTEX PHARMACEUTICALS INC-AE-2011-000795

PATIENT
  Age: 52 Year
  Sex: 0
  Weight: 81.82 kg

DRUGS (5)
  1. INCIVEK [Suspect]
     Indication: HEPATITIS C
     Route: 048
     Dates: start: 20110802
  2. PEGINTERFERON [Concomitant]
     Indication: HEPATITIS C
     Dates: start: 20110802
  3. RIBAVIRIN [Concomitant]
     Indication: HEPATITIS C
     Route: 048
     Dates: start: 20110802
  4. PREVACID [Concomitant]
     Indication: ABDOMINAL DISCOMFORT
     Route: 048
  5. MORPHINE PUMP CONTINUOUS, MORPHINE 10 MG BUPRENORPHINE 8% [Concomitant]
     Indication: BACK PAIN

REACTIONS (2)
  - Dizziness [Not Recovered/Not Resolved]
  - Nausea [Not Recovered/Not Resolved]
